FAERS Safety Report 11100695 (Version 2)
Quarter: 2015Q2

REPORT INFORMATION
  Report Type: Spontaneous
  Country: CH (occurrence: CH)
  Receive Date: 20150508
  Receipt Date: 20150512
  Transmission Date: 20150821
  Serious: Yes (Hospitalization)
  Sender: FDA-Public Use
  Company Number: CH-009507513-1504CHE024119

PATIENT
  Age: 60 Year
  Sex: Male

DRUGS (4)
  1. RIBAVIRIN. [Suspect]
     Active Substance: RIBAVIRIN
     Indication: HEPATITIS C
     Dosage: UNK
     Route: 048
     Dates: start: 20141224, end: 20150303
  2. VIEKIRAX [Suspect]
     Active Substance: OMBITASVIR\PARITAPREVIR\RITONAVIR
     Indication: HEPATITIS C
     Dosage: STRENGTH 50/12.5/75 MG, BID, TOTAL DAILY DOSAGE 100/25/150 MG
     Route: 048
     Dates: start: 20141224, end: 20150319
  3. EXVIERA [Suspect]
     Active Substance: DASABUVIR
     Indication: HEPATITIS C
     Dosage: 250 MG, BID
     Route: 048
     Dates: start: 20141224, end: 20150319
  4. AMLODIPINE BESYLATE (+) RAMIPRIL [Concomitant]
     Dosage: UNK

REACTIONS (4)
  - Hyperkalaemia [Recovering/Resolving]
  - Haemolysis [Recovering/Resolving]
  - Metabolic acidosis [Recovering/Resolving]
  - Diarrhoea [Recovering/Resolving]

NARRATIVE: CASE EVENT DATE: 20150319
